FAERS Safety Report 4620389-8 (Version None)
Quarter: 2005Q1

REPORT INFORMATION
  Report Type: 
  Country: None (occurrence: None)
  Receive Date: 20050321
  Receipt Date: 20050321
  Transmission Date: 20050727
  Serious: Yes (Hospitalization)
  Sender: FDA-Public Use
  Company Number: None

PATIENT
  Age: 38 Year
  Sex: Female

DRUGS (1)
  1. PROVIGIL [Suspect]
     Dosage: 400MG    DAILY    ORAL
     Route: 048
     Dates: start: 20040909, end: 20040928

REACTIONS (8)
  - ABNORMAL BEHAVIOUR [None]
  - ANXIETY [None]
  - DEPRESSION [None]
  - FEELING GUILTY [None]
  - INCOHERENT [None]
  - MOOD ALTERED [None]
  - PSYCHOTIC DISORDER [None]
  - SLEEP DISORDER [None]
